FAERS Safety Report 23917414 (Version 2)
Quarter: 2024Q2

REPORT INFORMATION
  Report Type: Report from Study
  Country: NL (occurrence: NL)
  Receive Date: 20240529
  Receipt Date: 20240604
  Transmission Date: 20240716
  Serious: Yes (Hospitalization)
  Sender: FDA-Public Use
  Company Number: NL-ABBVIE-5779492

PATIENT
  Sex: Female

DRUGS (13)
  1. CARBIDOPA\LEVODOPA [Suspect]
     Active Substance: CARBIDOPA\LEVODOPA
     Indication: Parkinson^s disease
     Dosage: MD: 12.0 ML, CD: 3.4 ML/H, ED: 2.0 ML,?DURATION: REMAINS AT 16 HOURS
     Route: 050
     Dates: start: 20231018, end: 20240213
  2. CARBIDOPA\LEVODOPA [Suspect]
     Active Substance: CARBIDOPA\LEVODOPA
     Dosage: DURATION TEXT: REMAINS AT 16 HOURS
     Route: 050
     Dates: start: 20200928
  3. CARBIDOPA\LEVODOPA [Suspect]
     Active Substance: CARBIDOPA\LEVODOPA
     Dosage: MD: 12.0 ML, CD: 3.1 ML/H, ED: 3.0 ML,?DURATION: REMAINS AT 16 HOURS
     Route: 050
     Dates: start: 20230920, end: 20231018
  4. CARBIDOPA\LEVODOPA [Suspect]
     Active Substance: CARBIDOPA\LEVODOPA
     Dosage: MD: 12.0 ML, CD: 3.4 ML/H, ED: 2.0 ML,?DURATION: REMAINS AT 16 HOURS
     Route: 050
     Dates: start: 20240213
  5. POLYETHYLENE GLYCOL 4000 [Concomitant]
     Active Substance: POLYETHYLENE GLYCOL 4000
     Indication: Gastrointestinal motility disorder
  6. POLYETHYLENE GLYCOLS [Concomitant]
     Active Substance: POLYETHYLENE GLYCOLS
     Indication: Constipation
  7. LORAZEPAM [Concomitant]
     Active Substance: LORAZEPAM
     Indication: Fear
  8. Fantomalt [Concomitant]
     Indication: Product used for unknown indication
  9. OMEPRAZOLE [Concomitant]
     Active Substance: DONEPEZIL HYDROCHLORIDE\OMEPRAZOLE\OMEPRAZOLE MAGNESIUM
     Indication: Gastrointestinal disorder prophylaxis
  10. CLOZAPINE [Concomitant]
     Active Substance: CLOZAPINE
     Indication: Product used for unknown indication
  11. METOPROLOL [Concomitant]
     Active Substance: METOPROLOL
     Indication: Hypertension
     Dosage: DOSE-23.75 MG
  12. TERRA-CORTRIL [Concomitant]
     Active Substance: HYDROCORTISONE ACETATE\OXYTETRACYCLINE HYDROCHLORIDE
     Indication: Product used for unknown indication
  13. PREGABALIN [Concomitant]
     Active Substance: PREGABALIN
     Indication: Neuralgia

REACTIONS (4)
  - Emergency care [Not Recovered/Not Resolved]
  - Off label use [Not Recovered/Not Resolved]
  - Device issue [Not Recovered/Not Resolved]
  - Abdominal pain [Not Recovered/Not Resolved]

NARRATIVE: CASE EVENT DATE: 20240524
